FAERS Safety Report 8153660-6 (Version None)
Quarter: 2012Q1

REPORT INFORMATION
  Report Type: 
  Country: None (occurrence: None)
  Receive Date: 20120221
  Receipt Date: 20120213
  Transmission Date: 20120608
  Serious: Yes (Other)
  Sender: FDA-Public Use
  Company Number: DE-SANOFI-AVENTIS-2012SA009201

PATIENT
  Sex: Female

DRUGS (5)
  1. LASIX [Suspect]
     Indication: OLIGURIA
     Route: 048
  2. LASIX [Suspect]
     Indication: TOCOLYSIS
     Route: 048
  3. LASIX [Suspect]
     Route: 041
  4. PARTUSISTEN [Concomitant]
     Indication: PREMATURE LABOUR
     Route: 048
  5. LASIX [Suspect]
     Route: 041

REACTIONS (8)
  - HAEMORRHAGE [None]
  - ABDOMINAL PAIN [None]
  - ERYTHEMA [None]
  - HELLP SYNDROME [None]
  - PRE-ECLAMPSIA [None]
  - MATERNAL EXPOSURE DURING PREGNANCY [None]
  - PLACENTAL DISORDER [None]
  - PLACENTAL INSUFFICIENCY [None]
